FAERS Safety Report 4449715-X (Version None)
Quarter: 2004Q3

REPORT INFORMATION
  Report Type: 
  Country: None (occurrence: None)
  Receive Date: 20040913
  Receipt Date: 20040824
  Transmission Date: 20050211
  Serious: Yes (Hospitalization)
  Sender: FDA-Public Use
  Company Number: A03200402900

PATIENT
  Age: 75 Year
  Sex: Female

DRUGS (2)
  1. PLAVIX [Suspect]
     Indication: ACUTE MYOCARDIAL INFARCTION
     Dosage: 75 MG QD - ORAL
     Route: 048
     Dates: start: 20040816, end: 20040823
  2. ACETYLSALICYLIC ACID [Concomitant]

REACTIONS (4)
  - COUGH [None]
  - PLEURAL EFFUSION [None]
  - POST PROCEDURAL HAEMORRHAGE [None]
  - THORACIC HAEMORRHAGE [None]
